FAERS Safety Report 7506664-8 (Version None)
Quarter: 2011Q2

REPORT INFORMATION
  Report Type: 
  Country: None (occurrence: None)
  Receive Date: 20110526
  Receipt Date: 20110524
  Transmission Date: 20111010
  Serious: Yes (Death, Other)
  Sender: FDA-Public Use
  Company Number: US-PURDUE-USA-2010-0049410

PATIENT
  Sex: Male

DRUGS (2)
  1. OXYCONTIN [Suspect]
     Indication: BONE PAIN
     Dosage: 30 MG, TID
  2. OXYCONTIN [Suspect]
     Dosage: 40 MG, TID
     Dates: start: 20100909

REACTIONS (7)
  - ABDOMINAL PAIN UPPER [None]
  - GASTROINTESTINAL HAEMORRHAGE [None]
  - MALAISE [None]
  - MULTI-ORGAN FAILURE [None]
  - DEATH [None]
  - LOSS OF CONSCIOUSNESS [None]
  - INADEQUATE ANALGESIA [None]
